FAERS Safety Report 25711862 (Version 1)
Quarter: 2025Q3

REPORT INFORMATION
  Report Type: Spontaneous
  Country: US (occurrence: US)
  Receive Date: 20250821
  Receipt Date: 20250821
  Transmission Date: 20251021
  Serious: No
  Sender: ROCHE
  Company Number: US-ROCHE-10000364902

PATIENT
  Sex: Female

DRUGS (5)
  1. ACTEMRA ACTPEN [Suspect]
     Active Substance: TOCILIZUMAB
     Indication: Giant cell arteritis
     Dosage: STRENGTH: 162MG/0.9M
     Route: 058
     Dates: start: 202505
  2. CELEBREX [Concomitant]
     Active Substance: CELECOXIB
  3. TRAMADOL [Concomitant]
     Active Substance: TRAMADOL
  4. DULOXETINE [Concomitant]
     Active Substance: DULOXETINE
  5. ESCITALOPRAM [Concomitant]
     Active Substance: ESCITALOPRAM OXALATE

REACTIONS (3)
  - Arthralgia [Unknown]
  - Bursitis [Unknown]
  - Depression [Unknown]
